FAERS Safety Report 4364999-4 (Version None)
Quarter: 2004Q2

REPORT INFORMATION
  Report Type: 
  Country: None (occurrence: None)
  Receive Date: 20040521
  Receipt Date: 20040510
  Transmission Date: 20050107
  Serious: Yes (Disabling)
  Sender: FDA-Public Use
  Company Number: 2004031634

PATIENT
  Age: 53 Year
  Sex: Male
  Weight: 96 kg

DRUGS (8)
  1. DOXAZOSIN (DOXAZOSIN) [Suspect]
     Indication: HYPERTENSION
     Dosage: 4 MG (4 MG, 1 IN 1 D), ORAL
     Route: 048
     Dates: end: 20040301
  2. MINOXIDIL [Concomitant]
  3. ACETYLSALICYLIC ACID SRT [Concomitant]
  4. SIMVASTATIN [Concomitant]
  5. ATENOLOL [Concomitant]
  6. REPAGLINIDE (REPAGLINIDE) [Concomitant]
  7. FUROSEMIDE [Concomitant]
  8. ENALAPRIL MALEATE [Concomitant]

REACTIONS (1)
  - EJACULATION FAILURE [None]
